FAERS Safety Report 16650621 (Version 1)
Quarter: 2019Q3

REPORT INFORMATION
  Report Type: Spontaneous
  Country: KE (occurrence: KE)
  Receive Date: 20190731
  Receipt Date: 20190731
  Transmission Date: 20191004
  Serious: Yes (Death, Hospitalization)
  Sender: FDA-Public Use
  Company Number: PHHY2019KE176515

PATIENT
  Age: 64 Year
  Sex: Male
  Weight: 53.3 kg

DRUGS (2)
  1. BETAPYN [Concomitant]
     Active Substance: ACETAMINOPHEN\CAFFEINE\CODEINE\DOXYLAMINE
     Indication: PRODUCT USED FOR UNKNOWN INDICATION
     Dosage: 2 PO 8HLY
     Route: 048
  2. GLIVEC [Suspect]
     Active Substance: IMATINIB MESYLATE
     Indication: CHRONIC MYELOID LEUKAEMIA
     Dosage: UNK
     Route: 065
     Dates: start: 20160914

REACTIONS (8)
  - Blast cell count increased [Fatal]
  - White blood cell count increased [Fatal]
  - Splenomegaly [Unknown]
  - Chronic myeloid leukaemia [Fatal]
  - Pain [Unknown]
  - Platelet count increased [Fatal]
  - Malignant neoplasm progression [Fatal]
  - Haemoglobin decreased [Unknown]

NARRATIVE: CASE EVENT DATE: 20190622
